FAERS Safety Report 8535299 (Version 3)
Quarter: 2012Q4

REPORT INFORMATION
  Report Type: 
  Country: US (occurrence: US)
  Receive Date: 20120430
  Receipt Date: 20121011
  Transmission Date: 20130627
  Serious: Yes (Other)
  Sender: FDA-Public Use
  Company Number: US-BIOGENIDEC-2011BI044109

PATIENT
  Age: 36 Year
  Sex: Female

DRUGS (8)
  1. TYSABRI [Suspect]
     Indication: MULTIPLE SCLEROSIS
     Route: 042
     Dates: start: 20070221, end: 20100406
  2. TYSABRI [Suspect]
     Indication: MULTIPLE SCLEROSIS
     Route: 042
     Dates: start: 20070321, end: 20080818
  3. BACLOFEN [Concomitant]
     Indication: MUSCLE SPASMS
     Dates: start: 2002, end: 2009
  4. BACLOFEN [Concomitant]
     Indication: MUSCLE SPASMS
     Dates: start: 2010
  5. PROZAC [Concomitant]
     Indication: DEPRESSION
     Dates: start: 2002, end: 2009
  6. PROZAC [Concomitant]
     Indication: DEPRESSION
     Dates: start: 2010
  7. FOCALIN [Concomitant]
     Indication: FATIGUE
     Dates: start: 2006, end: 2009
  8. FOCALIN [Concomitant]
     Indication: FATIGUE
     Dates: start: 2010

REACTIONS (2)
  - Umbilical cord abnormality [Recovered/Resolved]
  - Gestational diabetes [Recovered/Resolved]
